FAERS Safety Report 4921388-9 (Version None)
Quarter: 2006Q1

REPORT INFORMATION
  Report Type: 
  Country: None (occurrence: None)
  Receive Date: 20060224
  Receipt Date: 20060220
  Transmission Date: 20060701
  Serious: No
  Sender: FDA-Public Use
  Company Number: 2006UW02802

PATIENT
  Age: 8 Year

DRUGS (1)
  1. SEROQUEL [Suspect]
     Route: 048

REACTIONS (1)
  - RED BLOOD CELL MORPHOLOGY ABNORMAL [None]
